FAERS Safety Report 6773161-7 (Version None)
Quarter: 2010Q2

REPORT INFORMATION
  Report Type: 
  Country: None (occurrence: None)
  Receive Date: 20100520
  Receipt Date: 20090310
  Transmission Date: 20101027
  Serious: Yes (Other)
  Sender: FDA-Public Use
  Company Number: 2009181110

PATIENT
  Age: 57 Year
  Weight: 73 kg

DRUGS (11)
  1. PROVERA [Suspect]
     Indication: HOT FLUSH
     Dosage: 5 MG
     Dates: start: 19880101, end: 19890101
  2. PROVERA [Suspect]
     Indication: HYSTERECTOMY
     Dosage: 5 MG
     Dates: start: 19880101, end: 19890101
  3. PREMARIN [Suspect]
     Indication: HOT FLUSH
     Dosage: 0.625 MG ; 0.9 MG
     Dates: start: 19880101, end: 20020101
  4. PREMARIN [Suspect]
     Indication: HYSTERECTOMY
     Dosage: 0.625 MG ; 0.9 MG
     Dates: start: 19880101, end: 20020101
  5. PREMARIN [Suspect]
     Indication: HOT FLUSH
     Dosage: 0.625 MG ; 0.9 MG
     Dates: start: 19880101, end: 20020101
  6. PREMARIN [Suspect]
     Indication: HYSTERECTOMY
     Dosage: 0.625 MG ; 0.9 MG
     Dates: start: 19880101, end: 20020101
  7. ESTROGENS SOL/INJ [Suspect]
     Dates: end: 19760101
  8. PREVACID [Concomitant]
  9. OXYCONTIN [Concomitant]
  10. ROXICODONE [Concomitant]
  11. XANAX [Concomitant]

REACTIONS (1)
  - BREAST CANCER [None]
